FAERS Safety Report 4764466-X (Version None)
Quarter: 2005Q3

REPORT INFORMATION
  Report Type: 
  Country: None (occurrence: None)
  Receive Date: 20050907
  Receipt Date: 20050830
  Transmission Date: 20060218
  Serious: Yes (Hospitalization)
  Sender: FDA-Public Use
  Company Number: 2005120925

PATIENT
  Age: 56 Year
  Sex: Female

DRUGS (21)
  1. ALDACTONE [Suspect]
     Indication: ILL-DEFINED DISORDER
     Dosage: ORAL
     Route: 048
     Dates: start: 20020515, end: 20020523
  2. FUROSEMIDE [Concomitant]
  3. ASPIRIN [Concomitant]
  4. FAMOTIDINE [Concomitant]
  5. IMMUNOGLOBULINS (IMMUNOGLOBULINS) [Concomitant]
  6. METHYLPREDNISOLONE [Concomitant]
  7. ATARAX [Concomitant]
  8. CLINDAMYCIN HCL [Concomitant]
  9. LEVOFLOXACIN [Concomitant]
  10. TIENAM (CILASTATIN, IMIPENEM) [Concomitant]
  11. LOXONIN (LOXOPROFEN SODIUM) [Concomitant]
  12. HALOPERIDOL [Concomitant]
  13. ESTAZOLAM [Concomitant]
  14. GRAMALIL (TIAPRIDE HYDROCHLORIDE) [Concomitant]
  15. FOIPAN (CAMOSTAT MESILATE) [Concomitant]
  16. MUCOSTA (REBAMIPIDE) [Concomitant]
  17. MANNITOL [Concomitant]
  18. NITROPEN (GLYCERYL TRINITRATE) [Concomitant]
  19. DIGOXIN [Concomitant]
  20. WARFARIN SODIUM [Concomitant]
  21. SELBEX (TEPRENONE) [Concomitant]

REACTIONS (1)
  - TOXIC EPIDERMAL NECROLYSIS [None]
